FAERS Safety Report 4762194-8 (Version None)
Quarter: 2005Q3

REPORT INFORMATION
  Report Type: 
  Country: None (occurrence: None)
  Receive Date: 20050906
  Receipt Date: 20050906
  Transmission Date: 20060218
  Serious: Yes (Other)
  Sender: FDA-Public Use
  Company Number: None

PATIENT
  Sex: Female
  Weight: 56.6996 kg

DRUGS (1)
  1. KETEK [Suspect]
     Dosage: 2 TABLETS A DAY  2 TABLETS    PO
     Route: 048
     Dates: start: 20050902, end: 20050902

REACTIONS (7)
  - ACTIVITIES OF DAILY LIVING IMPAIRED [None]
  - DIARRHOEA [None]
  - EYE PAIN [None]
  - HEADACHE [None]
  - HYPOAESTHESIA ORAL [None]
  - PHARMACEUTICAL PRODUCT COMPLAINT [None]
  - VISION BLURRED [None]
